FAERS Safety Report 20195189 (Version 1)
Quarter: 2021Q4

REPORT INFORMATION
  Report Type: Spontaneous
  Country: CN (occurrence: CN)
  Receive Date: 20211216
  Receipt Date: 20211216
  Transmission Date: 20220304
  Serious: Yes (Other)
  Sender: FDA-Public Use
  Company Number: CN-BAYER-2021A266629

PATIENT
  Age: 59 Year
  Sex: Male
  Weight: 63 kg

DRUGS (5)
  1. STIVARGA [Suspect]
     Active Substance: REGORAFENIB
     Indication: Hepatic cancer
     Dosage: 80 MG, QD
     Route: 048
     Dates: start: 20211105, end: 20211206
  2. CAMRELIZUMAB [Suspect]
     Active Substance: CAMRELIZUMAB
     Indication: Immunochemotherapy
     Dosage: 200 MG, QD
     Route: 041
     Dates: start: 20211004, end: 20211004
  3. CAMRELIZUMAB [Suspect]
     Active Substance: CAMRELIZUMAB
     Indication: Immunochemotherapy
     Dosage: 200 MG, QD
     Route: 041
     Dates: start: 20211027, end: 20211027
  4. SODIUM CHLORIDE [Concomitant]
     Active Substance: SODIUM CHLORIDE
     Indication: Vehicle solution use
     Dosage: 250 ML, QD
     Route: 041
     Dates: start: 20211004, end: 20211004
  5. SODIUM CHLORIDE [Concomitant]
     Active Substance: SODIUM CHLORIDE
     Indication: Vehicle solution use
     Dosage: 250 ML, QD
     Route: 041
     Dates: start: 20211027, end: 20211027

REACTIONS (4)
  - Platelet count decreased [Recovering/Resolving]
  - Blood fibrinogen decreased [Recovering/Resolving]
  - Fibrin D dimer increased [Recovering/Resolving]
  - Off label use [None]

NARRATIVE: CASE EVENT DATE: 20211105
